FAERS Safety Report 13718484 (Version 2)
Quarter: 2017Q3

REPORT INFORMATION
  Report Type: Spontaneous
  Country: KR (occurrence: KR)
  Receive Date: 20170705
  Receipt Date: 20170714
  Transmission Date: 20171127
  Serious: Yes (Other)
  Sender: FDA-Public Use
  Company Number: KR-REGENERON PHARMACEUTICALS, INC.-2017-18201

PATIENT

DRUGS (17)
  1. EYLEA [Suspect]
     Active Substance: AFLIBERCEPT
     Dosage: 1 DF, ONCE (5TH INJECTION - 6 MONTHS OF TREATMENT)
     Dates: start: 201405, end: 201405
  2. EYLEA [Suspect]
     Active Substance: AFLIBERCEPT
     Dosage: 1 DF, ONCE (14TH INJECTION - 2 MONTHS AFTET 13TH INJECTION)
     Dates: start: 2016, end: 2016
  3. EYLEA [Suspect]
     Active Substance: AFLIBERCEPT
     Dosage: 1 DF, ONCE (19TH INJECTION - 2 MONTHS AFTER 18TH INJECTION)
     Dates: start: 2016, end: 2016
  4. EYLEA [Suspect]
     Active Substance: AFLIBERCEPT
     Indication: PRODUCT USED FOR UNKNOWN INDICATION
     Dosage: 1 DF, ONCE (1ST, 2ND AND 3RD INJECTIONS)
     Dates: start: 201312, end: 201402
  5. EYLEA [Suspect]
     Active Substance: AFLIBERCEPT
     Dosage: 1 DF, ONCE (12TH INJECTION - 2.5 MONTHS AFTER 11TH INJECTION)
     Dates: start: 2015, end: 2015
  6. EYLEA [Suspect]
     Active Substance: AFLIBERCEPT
     Dosage: 1 DF, Q1MON (8TH, 9TH AND 10TH INJECTIONS)
     Dates: start: 2015, end: 2015
  7. EYLEA [Suspect]
     Active Substance: AFLIBERCEPT
     Dosage: 1 DF, ONCE (11TH INJECTION - 2 MONTHS AFTER 10TH INJECTION)
     Dates: start: 2015, end: 2015
  8. EYLEA [Suspect]
     Active Substance: AFLIBERCEPT
     Dosage: 1 DF, ONCE (17TH INJECTION - 2 MONTHS AFTER 16TH INJECTION)
     Dates: start: 2016, end: 2016
  9. EYLEA [Suspect]
     Active Substance: AFLIBERCEPT
     Dosage: 1 DF, ONCE (6TH INJECTION - 8 MONTHS OF TREATMENT)
     Dates: start: 201407, end: 201407
  10. EYLEA [Suspect]
     Active Substance: AFLIBERCEPT
     Dosage: 1 DF, ONCE (4TH INJECTION - 4 MONTHS OF TREATMENT)
     Dates: start: 201403, end: 201403
  11. EYLEA [Suspect]
     Active Substance: AFLIBERCEPT
     Dosage: 1 DF, ONCE (16TH INJECTION - 2 MONTHS AFTER 15TH INJECTION)
     Dates: start: 2016, end: 2016
  12. EYLEA [Suspect]
     Active Substance: AFLIBERCEPT
     Dosage: (18TH INJECTION - 2.5 MONTHS AFTER 17TH INJECTION)
     Dates: start: 2016, end: 2016
  13. EYLEA [Suspect]
     Active Substance: AFLIBERCEPT
     Dosage: (20TH INJECTION - 2.5 MONTHS AFTET 19TH INJECTION)
     Dates: start: 2017, end: 2017
  14. EYLEA [Suspect]
     Active Substance: AFLIBERCEPT
     Dosage: (21ST INJECTION - 3 MONTHS AFTER 20TH INJECTION)
     Dates: start: 2017, end: 2017
  15. EYLEA [Suspect]
     Active Substance: AFLIBERCEPT
     Dosage: 1 DF, ONCE (7TH INJECTION - 10 MONTHS OF TREATMENT)
     Dates: start: 201409, end: 201409
  16. EYLEA [Suspect]
     Active Substance: AFLIBERCEPT
     Dosage: 1 DF, ONCE (13TH INJECTION - 3 MONTHS AFTER 12TH INJECTION)
     Dates: start: 2015, end: 2015
  17. EYLEA [Suspect]
     Active Substance: AFLIBERCEPT
     Dosage: 1 DF, ONCE (15TH INJECTION - 2.5 MONTHS AFTER 14TH INJECTION)
     Dates: start: 2016, end: 2016

REACTIONS (3)
  - Cataract [Unknown]
  - Dry age-related macular degeneration [Unknown]
  - Retinal drusen [Unknown]
